FAERS Safety Report 23752575 (Version 1)
Quarter: 2024Q2

REPORT INFORMATION
  Report Type: Report from Study
  Country: CA (occurrence: CA)
  Receive Date: 20240417
  Receipt Date: 20240417
  Transmission Date: 20240715
  Serious: Yes (Other)
  Sender: FDA-Public Use
  Company Number: CA-JNJFOC-20231264348

PATIENT
  Age: 6 Decade
  Sex: Male

DRUGS (2)
  1. STELARA [Suspect]
     Active Substance: USTEKINUMAB
     Indication: Crohn^s disease
     Route: 058
     Dates: start: 20180601
  2. STELARA [Suspect]
     Active Substance: USTEKINUMAB
     Route: 058

REACTIONS (2)
  - Knee arthroplasty [Unknown]
  - Bone disorder [Unknown]
